FAERS Safety Report 8416557-X (Version None)
Quarter: 2012Q2

REPORT INFORMATION
  Report Type: 
  Country: None (occurrence: None)
  Receive Date: 20120606
  Receipt Date: 20120602
  Transmission Date: 20120825
  Serious: Yes (Hospitalization)
  Sender: FDA-Public Use
  Company Number: DE-GLAXOSMITHKLINE-D0075829A

PATIENT
  Sex: Female
  Weight: 60 kg

DRUGS (2)
  1. LAMICTAL [Suspect]
     Route: 048
  2. VALPROIC ACID [Suspect]
     Route: 048
     Dates: start: 20120602

REACTIONS (3)
  - SUICIDE ATTEMPT [None]
  - FATIGUE [None]
  - OVERDOSE [None]
